FAERS Safety Report 12707562 (Version 8)
Quarter: 2017Q1

REPORT INFORMATION
  Report Type: Report from Study
  Country: US (occurrence: US)
  Receive Date: 20160901
  Receipt Date: 20170126
  Transmission Date: 20170428
  Serious: Yes (Other)
  Sender: FDA-Public Use
  Company Number: US-AMGEN-USASL2016111890

PATIENT
  Age: 51 Year
  Sex: Female
  Weight: 113.2 kg

DRUGS (60)
  1. ENBREL [Suspect]
     Active Substance: ETANERCEPT
     Indication: RHEUMATOID ARTHRITIS
     Dosage: UNK, 2 TIMES/WK
     Route: 065
     Dates: start: 200212
  2. ENBREL [Suspect]
     Active Substance: ETANERCEPT
     Dosage: UNK
     Route: 065
  3. ALLERGY AND SINUS [Concomitant]
     Dosage: UNK UNK, AS NECESSARY
     Dates: start: 20130225
  4. SUCRALFATE. [Concomitant]
     Active Substance: SUCRALFATE
     Dosage: 1 G, TID
     Route: 048
     Dates: start: 20130225
  5. ZOCOR [Concomitant]
     Active Substance: SIMVASTATIN
     Dosage: 40 MG, QD
     Route: 048
  6. PANTOPRAZOLE [Concomitant]
     Active Substance: PANTOPRAZOLE SODIUM
     Dosage: 40 MG, BID
     Route: 048
  7. DOXYCYCLINE. [Concomitant]
     Active Substance: DOXYCYCLINE
     Dosage: 20 MG, BID
  8. LUSTRA-AF [Concomitant]
     Active Substance: HYDROQUINONE
     Indication: SKIN HYPERPIGMENTATION
     Dosage: UNK, BID
  9. BENADRYL [Concomitant]
     Active Substance: DIPHENHYDRAMINE HYDROCHLORIDE
     Dosage: 25 MG, AS NECESSARY
     Route: 048
     Dates: start: 20130225
  10. GAVISCON [Concomitant]
     Active Substance: ALUMINUM HYDROXIDE\MAGNESIUM CARBONATE
     Dosage: 20 MG, AS NECESSARY
     Route: 048
     Dates: start: 20130225
  11. SIMVASTATIN. [Concomitant]
     Active Substance: SIMVASTATIN
     Dosage: 40 MG, UNK
  12. ZOCOR [Concomitant]
     Active Substance: SIMVASTATIN
     Dosage: 10 MG, UNK
  13. ADOXA [Concomitant]
     Active Substance: DOXYCYCLINE
     Dosage: 150 MG, QD
     Dates: start: 20160911
  14. ASA [Concomitant]
     Active Substance: ASPIRIN
     Dosage: 81 UNK, QD
  15. ASPIR LOW [Concomitant]
     Active Substance: ASPIRIN
     Dosage: 81 MG, UNK
  16. NEOSALUS [Concomitant]
  17. CELEXA [Concomitant]
     Active Substance: CITALOPRAM HYDROBROMIDE
     Dosage: 20 MG, QD
     Route: 048
     Dates: start: 20131118
  18. DEXILANT [Concomitant]
     Active Substance: DEXLANSOPRAZOLE
     Dosage: 60 MG, QD
     Route: 048
     Dates: start: 20150407
  19. GAVISCON [Concomitant]
     Active Substance: ALUMINUM HYDROXIDE\MAGNESIUM CARBONATE
     Dosage: 80 MG, AS NECESSARY
     Route: 048
  20. HUMIRA [Concomitant]
     Active Substance: ADALIMUMAB
     Dosage: 40 MG, QWK
     Route: 058
     Dates: start: 20161027
  21. CINNAMON. [Concomitant]
     Active Substance: CINNAMON
     Dosage: 500 MG, QD
     Route: 048
  22. ADOXA [Concomitant]
     Active Substance: DOXYCYCLINE
     Indication: ACNE
     Dosage: UNK
  23. XEOMIN [Concomitant]
     Active Substance: INCOBOTULINUMTOXINA
  24. ENBREL [Suspect]
     Active Substance: ETANERCEPT
     Dosage: 25 MG, 2 TIMES/WK
     Route: 058
     Dates: end: 201507
  25. SULFASALAZINE. [Concomitant]
     Active Substance: SULFASALAZINE
     Dosage: 500 MG, BID
     Dates: start: 20160606
  26. FLECTOR [Concomitant]
     Active Substance: DICLOFENAC EPOLAMINE
     Dosage: UNK UNK, AS NECESSARY
     Route: 061
     Dates: start: 20130225
  27. IBUPROFEN. [Concomitant]
     Active Substance: IBUPROFEN
     Dosage: 600 MG, UNK
  28. PROBIOTIC [Concomitant]
     Active Substance: PROBIOTICS NOS
     Dosage: UNK UNK, QD
     Dates: start: 20120620
  29. SIMVASTATIN. [Concomitant]
     Active Substance: SIMVASTATIN
     Dosage: 60 MG, UNK
  30. ZITHROMAX [Concomitant]
     Active Substance: AZITHROMYCIN DIHYDRATE
     Indication: DERMATITIS
     Dosage: UNK
  31. CLINDAMYCIN. [Concomitant]
     Active Substance: CLINDAMYCIN
     Indication: DERMATITIS
     Dosage: UNK
  32. ENBREL [Suspect]
     Active Substance: ETANERCEPT
     Dosage: UNK, 2 TIMES/WK
     Route: 065
  33. METHOTREXATE. [Concomitant]
     Active Substance: METHOTREXATE
     Indication: RHEUMATOID ARTHRITIS
     Dosage: 2.5 MG, UNK
     Dates: start: 200101
  34. MINOCYCLINE [Concomitant]
     Active Substance: MINOCYCLINE\MINOCYCLINE HYDROCHLORIDE
     Indication: RHEUMATOID ARTHRITIS
     Dosage: UNK
  35. IBUPROFEN. [Concomitant]
     Active Substance: IBUPROFEN
     Dosage: 200 MG, AS NECESSARY
     Route: 048
     Dates: start: 20120620
  36. MAGNESIUM [Concomitant]
     Active Substance: MAGNESIUM
     Dosage: UNK UNK, QD
     Dates: start: 20140319
  37. SIMVASTATIN. [Concomitant]
     Active Substance: SIMVASTATIN
     Dosage: 20 MG, QOD
     Dates: start: 20130225
  38. XANAX [Concomitant]
     Active Substance: ALPRAZOLAM
     Dosage: 0.25 MG, PER DAY PRN
     Dates: start: 20120620
  39. KLARON [Concomitant]
     Active Substance: SULFACETAMIDE SODIUM
     Indication: DERMATITIS
  40. GLYQUIN [Concomitant]
     Indication: SKIN HYPERPIGMENTATION
     Dosage: UNK
     Dates: start: 20010111
  41. TRETINOIN. [Concomitant]
     Active Substance: TRETINOIN
     Indication: ACNE
  42. CLEOCIN [Concomitant]
     Active Substance: CLINDAMYCIN PHOSPHATE
  43. ASPIRIN. [Concomitant]
     Active Substance: ASPIRIN
     Dosage: 81 MG, QD
     Route: 048
     Dates: start: 20120620
  44. COREG [Concomitant]
     Active Substance: CARVEDILOL
     Dosage: 25 MG, BID
     Route: 048
     Dates: start: 20160908
  45. CYCLOBENZAPRINE [Concomitant]
     Active Substance: CYCLOBENZAPRINE
     Dosage: 5 MG, AS NECESSARY
     Route: 048
     Dates: start: 20151228
  46. VITAMIN D3 [Concomitant]
     Active Substance: CHOLECALCIFEROL
     Dosage: 2000 IU, QD
     Route: 048
  47. VITAMIN B COMPLEX [Concomitant]
     Active Substance: CYANOCOBALAMIN\DEXPANTHENOL\NIACINAMIDE\PYRIDOXINE HYDROCHLORIDE\RIBOFLAVIN 5^-PHOSPHATE SODIUM\THIAMINE HYDROCHLORIDE\VITAMIN B COMPLEX
     Dosage: UNK UNK, BID
     Route: 048
  48. DORYX [Concomitant]
     Active Substance: DOXYCYCLINE HYCLATE
     Indication: DERMATITIS
     Dosage: 100 MG, BID
  49. FOLIC ACID. [Concomitant]
     Active Substance: FOLIC ACID
     Dosage: 1 MG, BID
     Route: 048
     Dates: start: 20160908
  50. FISH OIL [Concomitant]
     Active Substance: FISH OIL
     Dosage: UNK UNK, TID
     Route: 048
  51. CARAFATE [Concomitant]
     Active Substance: SUCRALFATE
  52. PROTONIX [Concomitant]
     Active Substance: PANTOPRAZOLE SODIUM
     Dosage: UNK
  53. LUSTRA-AF [Concomitant]
     Active Substance: HYDROQUINONE
     Indication: DERMATITIS
     Dosage: UNK UNK, QD
  54. LOKARA [Concomitant]
     Active Substance: DESONIDE
     Indication: DERMATITIS
  55. AMOX [Concomitant]
     Active Substance: UNSPECIFIED INGREDIENT
     Dosage: 500 MG, UNK
  56. SOLODYN [Concomitant]
     Active Substance: MINOCYCLINE HYDROCHLORIDE
     Indication: DERMATITIS
     Dosage: 90 MG, QD
  57. PERLANE [Concomitant]
     Active Substance: HYALURONIC ACID
  58. ALEVE [Concomitant]
     Active Substance: NAPROXEN SODIUM
     Dosage: 220 MG, AS NECESSARY
     Route: 048
     Dates: start: 20120620
  59. DESONIDE. [Concomitant]
     Active Substance: DESONIDE
     Indication: DERMATITIS
  60. NEXIUM [Concomitant]
     Active Substance: ESOMEPRAZOLE MAGNESIUM
     Dosage: 20 MG, UNK

REACTIONS (9)
  - Tooth infection [Unknown]
  - Dry mouth [Unknown]
  - Injection site pain [Unknown]
  - Nervous system disorder [Unknown]
  - Unevaluable event [Unknown]
  - Tooth abscess [Unknown]
  - Onychomycosis [Unknown]
  - Vitreous floaters [Recovered/Resolved]
  - Tooth disorder [Unknown]

NARRATIVE: CASE EVENT DATE: 2006
